FAERS Safety Report 8584153-X (Version None)
Quarter: 2012Q3

REPORT INFORMATION
  Report Type: 
  Country: None (occurrence: None)
  Receive Date: 20120810
  Receipt Date: 20120802
  Transmission Date: 20120928
  Serious: Yes (Hospitalization)
  Sender: FDA-Public Use
  Company Number: AR-AMGEN-ARGSP2012034910

PATIENT
  Age: 36 Year
  Sex: Male

DRUGS (2)
  1. METHOTREXATE SODIUM [Concomitant]
     Dosage: UNK
  2. ENBREL [Suspect]
     Indication: PSORIATIC ARTHROPATHY
     Dosage: 25 MG, 2X/WEEK
     Dates: start: 20120302, end: 20120601

REACTIONS (5)
  - DRUG INEFFECTIVE [None]
  - BLOOD POTASSIUM DECREASED [None]
  - PSORIATIC ARTHROPATHY [None]
  - DIARRHOEA [None]
  - ANAEMIA [None]
